FAERS Safety Report 6078848-X (Version None)
Quarter: 2009Q1

REPORT INFORMATION
  Report Type: 
  Country: None (occurrence: None)
  Receive Date: 20090216
  Receipt Date: 20090205
  Transmission Date: 20090719
  Serious: Yes (Other)
  Sender: FDA-Public Use
  Company Number: PHBS2009CA00812

PATIENT
  Age: 11 Year
  Sex: Female

DRUGS (5)
  1. PAMIDRONATE DISODIUM [Suspect]
     Indication: OSTEOMYELITIS CHRONIC
     Dosage: 0.5 MG/KG/DAY
  2. PAMIDRONATE DISODIUM [Suspect]
     Dosage: 60 MG/DAY
  3. NAPROXEN [Concomitant]
     Indication: BONE PAIN
     Dosage: 15 MG/KG/DAY
  4. CODEINE [Concomitant]
     Indication: BONE PAIN
  5. CLOXACILLIN [Concomitant]
     Indication: BONE PAIN

REACTIONS (1)
  - OSTEOMYELITIS CHRONIC [None]
